FAERS Safety Report 5747502-3 (Version None)
Quarter: 2008Q2

REPORT INFORMATION
  Report Type: 
  Country: None (occurrence: None)
  Receive Date: 20080523
  Receipt Date: 20080512
  Transmission Date: 20081010
  Serious: Yes (Death)
  Sender: FDA-Public Use
  Company Number: US-ROCHE-564052

PATIENT
  Sex: Female
  Weight: 39.5 kg

DRUGS (4)
  1. FUZEON [Suspect]
     Route: 058
     Dates: start: 20070601, end: 20080218
  2. RITONAVIR [Concomitant]
     Dosage: DRUG REPORTED AS RITONIVIR
     Dates: end: 20080218
  3. DARUNAVIR [Concomitant]
     Dosage: DRUG REPORTED AS DARUNIVIR
     Dates: end: 20080218
  4. TENOFOVIR [Concomitant]
     Dates: end: 20080218

REACTIONS (1)
  - DISEASE PROGRESSION [None]
